FAERS Safety Report 4985472-6 (Version None)
Quarter: 2006Q2

REPORT INFORMATION
  Report Type: 
  Country: None (occurrence: None)
  Receive Date: 20060428
  Receipt Date: 20050329
  Transmission Date: 20061013
  Serious: No
  Sender: FDA-Public Use
  Company Number: US-GLAXOSMITHKLINE-A0551739A

PATIENT
  Age: 75 Year
  Sex: Female

DRUGS (3)
  1. FLOVENT [Suspect]
     Indication: ASTHMA
     Dosage: 2PUFF PER DAY
     Route: 055
     Dates: start: 20050202, end: 20050202
  2. MULTI-VITAMIN [Concomitant]
  3. OMEGA 3 FISH OIL [Concomitant]

REACTIONS (3)
  - ORAL DISCOMFORT [None]
  - RESPIRATORY TRACT IRRITATION [None]
  - VOCAL CORD INFLAMMATION [None]
